FAERS Safety Report 10165819 (Version 1)
Quarter: 2014Q2

REPORT INFORMATION
  Report Type: Spontaneous
  Country: US (occurrence: US)
  Receive Date: 20140510
  Receipt Date: 20140510
  Transmission Date: 20141212
  Serious: No
  Sender: FDA-Public Use
  Company Number: US-BRISTOL-MYERS SQUIBB COMPANY-19971613

PATIENT
  Age: 56 Year
  Sex: Male
  Weight: 112.01 kg

DRUGS (1)
  1. BYDUREON [Suspect]
     Indication: TYPE 2 DIABETES MELLITUS
     Dosage: NO OF INJECTIONS:6
     Dates: start: 20131018

REACTIONS (1)
  - Injection site nodule [Not Recovered/Not Resolved]
